FAERS Safety Report 25350132 (Version 1)
Quarter: 2025Q2

REPORT INFORMATION
  Report Type: Spontaneous
  Country: US (occurrence: US)
  Receive Date: 20250523
  Receipt Date: 20250523
  Transmission Date: 20250717
  Serious: No
  Sender: ROCHE
  Company Number: US-ROCHE-10000286642

PATIENT
  Sex: Male

DRUGS (1)
  1. ERIVEDGE [Suspect]
     Active Substance: VISMODEGIB
     Indication: Basal cell carcinoma
     Dosage: ONE WEEK ON AND ONE WEEK OFF CYCLE
     Route: 048
     Dates: start: 202503

REACTIONS (2)
  - Joint swelling [Unknown]
  - Fluid retention [Unknown]
